FAERS Safety Report 20780004 (Version 2)
Quarter: 2022Q2

REPORT INFORMATION
  Report Type: Spontaneous
  Country: CA (occurrence: CA)
  Receive Date: 20220503
  Receipt Date: 20220513
  Transmission Date: 20220721
  Serious: Yes (Other)
  Sender: FDA-Public Use
  Company Number: CA-BAXTER-2022BAX009518

PATIENT
  Age: 37 Year
  Sex: Female

DRUGS (21)
  1. DOXORUBICIN [Suspect]
     Active Substance: DOXORUBICIN
     Indication: Anaplastic large-cell lymphoma
     Dosage: BV-CHP REGIMEN;3 CYCLES, DOSAGE FORM: SOLUTION FOR INFUSION
     Route: 065
  2. DOXORUBICIN [Suspect]
     Active Substance: DOXORUBICIN
     Indication: Anaplastic lymphoma receptor tyrosine kinase assay
  3. CYCLOPHOSPHAMIDE [Suspect]
     Active Substance: CYCLOPHOSPHAMIDE
     Indication: Anaplastic large-cell lymphoma
     Dosage: BV-CHP REGIMEN;TOTAL OF 3 CYCLES
     Route: 065
  4. CYCLOPHOSPHAMIDE [Suspect]
     Active Substance: CYCLOPHOSPHAMIDE
     Indication: Anaplastic lymphoma receptor tyrosine kinase assay
  5. PREDNISONE [Suspect]
     Active Substance: PREDNISONE
     Indication: Anaplastic large-cell lymphoma
     Dosage: BV-CHP REGIMEN;TOTAL OF 3 CYCLES
     Route: 065
  6. PREDNISONE [Suspect]
     Active Substance: PREDNISONE
     Indication: Anaplastic lymphoma receptor tyrosine kinase assay
  7. BRENTUXIMAB VEDOTIN [Suspect]
     Active Substance: BRENTUXIMAB VEDOTIN
     Indication: Anaplastic large-cell lymphoma
     Dosage: BV-CHP REGIMEN;TOTAL OF 3 CYCLES
     Route: 065
  8. BRENTUXIMAB VEDOTIN [Suspect]
     Active Substance: BRENTUXIMAB VEDOTIN
     Indication: Anaplastic lymphoma receptor tyrosine kinase assay
  9. BRENTUXIMAB VEDOTIN [Suspect]
     Active Substance: BRENTUXIMAB VEDOTIN
     Indication: ALK gene rearrangement assay
  10. GEMCITABINE [Suspect]
     Active Substance: GEMCITABINE
     Indication: Anaplastic large-cell lymphoma
     Dosage: UNK
     Route: 065
  11. GEMCITABINE [Suspect]
     Active Substance: GEMCITABINE
     Indication: Anaplastic lymphoma receptor tyrosine kinase assay
  12. GEMCITABINE [Suspect]
     Active Substance: GEMCITABINE
     Indication: Disease recurrence
  13. GEMCITABINE [Suspect]
     Active Substance: GEMCITABINE
     Indication: Disease recurrence
  14. DEXAMETHASONE [Suspect]
     Active Substance: DEXAMETHASONE
     Indication: Anaplastic large-cell lymphoma
     Dosage: UNK
     Route: 065
  15. DEXAMETHASONE [Suspect]
     Active Substance: DEXAMETHASONE
     Indication: Anaplastic lymphoma receptor tyrosine kinase assay
  16. DEXAMETHASONE [Suspect]
     Active Substance: DEXAMETHASONE
     Indication: Disease recurrence
  17. DEXAMETHASONE [Suspect]
     Active Substance: DEXAMETHASONE
     Indication: Disease recurrence
  18. CISPLATIN [Suspect]
     Active Substance: CISPLATIN
     Indication: Anaplastic large-cell lymphoma
     Dosage: UNK
     Route: 065
  19. CISPLATIN [Suspect]
     Active Substance: CISPLATIN
     Indication: Anaplastic lymphoma receptor tyrosine kinase assay
  20. CISPLATIN [Suspect]
     Active Substance: CISPLATIN
     Indication: Disease recurrence
  21. CISPLATIN [Suspect]
     Active Substance: CISPLATIN
     Indication: Disease recurrence

REACTIONS (8)
  - Splenomegaly [Recovered/Resolved]
  - Blood uric acid increased [Unknown]
  - Condition aggravated [Unknown]
  - Encephalopathy [Recovered/Resolved]
  - Tumour lysis syndrome [Recovering/Resolving]
  - Blood lactate dehydrogenase increased [Unknown]
  - Blood calcium increased [Unknown]
  - Cytopenia [Not Recovered/Not Resolved]
